FAERS Safety Report 16745130 (Version 1)
Quarter: 2019Q3

REPORT INFORMATION
  Report Type: Spontaneous
  Country: FR (occurrence: FR)
  Receive Date: 20190827
  Receipt Date: 20190827
  Transmission Date: 20191005
  Serious: Yes (Hospitalization, Other)
  Sender: FDA-Public Use
  Company Number: FR-MYLANLABS-2019M1019456

PATIENT
  Age: 59 Year
  Sex: Female
  Weight: 111 kg

DRUGS (1)
  1. PREDNISONE. [Suspect]
     Active Substance: PREDNISONE
     Indication: RHEUMATOID ARTHRITIS
     Dosage: 10 MILLIGRAM, QD
     Route: 048
     Dates: start: 2012

REACTIONS (2)
  - Osteoporotic fracture [Recovered/Resolved with Sequelae]
  - Cushing^s syndrome [Recovered/Resolved with Sequelae]

NARRATIVE: CASE EVENT DATE: 2017
